FAERS Safety Report 7992149-1 (Version None)
Quarter: 2011Q4

REPORT INFORMATION
  Report Type: 
  Country: None (occurrence: None)
  Receive Date: 20111219
  Receipt Date: 20110610
  Transmission Date: 20120403
  Serious: No
  Sender: FDA-Public Use
  Company Number: US-ASTRAZENECA-2011SE35647

PATIENT
  Age: 51 Year
  Sex: Female
  Weight: 51.3 kg

DRUGS (1)
  1. CRESTOR [Suspect]
     Route: 048
     Dates: start: 20110523

REACTIONS (2)
  - BLOOD URINE PRESENT [None]
  - RENAL PAIN [None]
